FAERS Safety Report 14490848 (Version 1)
Quarter: 2018Q1

REPORT INFORMATION
  Report Type: Spontaneous
  Country: BE (occurrence: BE)
  Receive Date: 20180206
  Receipt Date: 20180206
  Transmission Date: 20180509
  Serious: Yes (Life-Threatening, Hospitalization, Other)
  Sender: FDA-Public Use
  Company Number: BE-MACLEODS PHARMACEUTICALS US LTD-MAC2018009439

PATIENT

DRUGS (2)
  1. GLICLAZIDE [Concomitant]
     Active Substance: GLICLAZIDE
     Indication: TYPE 2 DIABETES MELLITUS
     Dosage: 30 MG, QD, RETARD
     Route: 065
  2. METFORMIN HYDROCHLORIDE 850MG [Suspect]
     Active Substance: METFORMIN HYDROCHLORIDE
     Indication: TYPE 2 DIABETES MELLITUS
     Dosage: 850 MG, TID, 8 HOUR
     Route: 065

REACTIONS (15)
  - Toxicity to various agents [Unknown]
  - Pallor [Unknown]
  - Hyperkalaemia [Unknown]
  - Asthenia [Unknown]
  - Restlessness [Unknown]
  - Dyspnoea [Unknown]
  - Myalgia [Unknown]
  - Acute myocardial infarction [Unknown]
  - Acute kidney injury [Unknown]
  - Vomiting [Unknown]
  - Lactic acidosis [Unknown]
  - Speech disorder [Unknown]
  - Hyperventilation [Unknown]
  - Back pain [Unknown]
  - Mental status changes [Unknown]
